FAERS Safety Report 12662191 (Version 1)
Quarter: 2016Q3

REPORT INFORMATION
  Report Type: Spontaneous
  Country: CA (occurrence: CA)
  Receive Date: 20160817
  Receipt Date: 20160817
  Transmission Date: 20161109
  Serious: Yes (Death)
  Sender: FDA-Public Use
  Company Number: CA-ASTRAZENECA-2016SE87546

PATIENT
  Sex: Female

DRUGS (7)
  1. OXYCONTIN [Concomitant]
     Active Substance: OXYCODONE HYDROCHLORIDE
     Dates: start: 2011
  2. CLONAZEPAM. [Concomitant]
     Active Substance: CLONAZEPAM
     Indication: ANXIETY
     Dates: start: 2009
  3. BENZODIAZEPINE [Concomitant]
     Active Substance: BENZODIAZEPINE
     Indication: ANXIETY
     Dates: start: 2009
  4. SEROQUEL [Suspect]
     Active Substance: QUETIAPINE FUMARATE
     Route: 048
     Dates: start: 201112
  5. OXYCONTIN [Concomitant]
     Active Substance: OXYCODONE HYDROCHLORIDE
     Dates: start: 2011
  6. MORPHINE [Concomitant]
     Active Substance: MORPHINE
  7. ATAVIN [Concomitant]

REACTIONS (1)
  - Death [Fatal]
